FAERS Safety Report 14362195 (Version 1)
Quarter: 2018Q1

REPORT INFORMATION
  Report Type: Spontaneous
  Country: GB (occurrence: GB)
  Receive Date: 20180108
  Receipt Date: 20180108
  Transmission Date: 20180509
  Serious: Yes (Other)
  Sender: FDA-Public Use
  Company Number: GB-CIPLA LTD.-2017GB30651

PATIENT

DRUGS (1)
  1. AMLODIPINE [Suspect]
     Active Substance: AMLODIPINE BESYLATE
     Dosage: 10 MG, PER DAY
     Route: 048

REACTIONS (4)
  - Syncope [Recovered/Resolved]
  - Burning sensation [Recovered/Resolved]
  - Angina pectoris [Recovered/Resolved]
  - Product substitution issue [Unknown]
